FAERS Safety Report 4881658-X (Version None)
Quarter: 2006Q1

REPORT INFORMATION
  Report Type: 
  Country: None (occurrence: None)
  Receive Date: 20060111
  Receipt Date: 20060111
  Transmission Date: 20060701
  Serious: Yes (Death)
  Sender: FDA-Public Use
  Company Number: None

PATIENT
  Sex: Female
  Weight: 11.7 kg

DRUGS (2)
  1. CARBOPLATIN [Suspect]
     Indication: NEUROBLASTOMA
     Dosage: SEE IMAGE
     Dates: start: 20051207, end: 20051210
  2. ETOPOSIDE [Suspect]
     Dosage: SEE IMAGE
     Dates: start: 20051207, end: 20051210

REACTIONS (18)
  - ABDOMINAL DISTENSION [None]
  - ANAEMIA [None]
  - BLOOD PRESSURE ABNORMAL [None]
  - BONE MARROW TRANSPLANT [None]
  - CARDIAC DISORDER [None]
  - CARDIO-RESPIRATORY ARREST [None]
  - FLUID RETENTION [None]
  - GASTROINTESTINAL DISORDER [None]
  - HEART RATE DECREASED [None]
  - HYPOKALAEMIA [None]
  - HYPONATRAEMIA [None]
  - HYPOPERFUSION [None]
  - NEUTROPENIA [None]
  - RESPIRATORY DISORDER [None]
  - SEPTIC SHOCK [None]
  - THROMBOCYTOPENIA [None]
  - UNEVALUABLE EVENT [None]
  - URINE OUTPUT DECREASED [None]
